FAERS Safety Report 5258323-2 (Version None)
Quarter: 2007Q1

REPORT INFORMATION
  Report Type: 
  Country: None (occurrence: None)
  Receive Date: 20070306
  Receipt Date: 20070306
  Transmission Date: 20070707
  Serious: Yes (Death)
  Sender: FDA-Public Use
  Company Number: None

PATIENT
  Age: 56 Year
  Sex: Male
  Weight: 84.8226 kg

DRUGS (8)
  1. INTERFERON ALPHA 2A [Suspect]
     Indication: DRUG ABUSER
     Dates: start: 20061201, end: 20070104
  2. INTERFERON ALPHA 2A [Suspect]
     Indication: HEPATITIS C
     Dates: start: 20061201, end: 20070104
  3. RIBAVIRIN [Suspect]
  4. METHADONE HCL [Concomitant]
  5. PHENYRAMINE [Concomitant]
  6. DIPHENHYDRAMINE HCL [Concomitant]
  7. ACETAMINOPHEN [Concomitant]
  8. METHADONE HCL [Concomitant]

REACTIONS (5)
  - ACUTE RESPIRATORY DISTRESS SYNDROME [None]
  - CHILLS [None]
  - CRYPTOGENIC ORGANISING PNEUMONIA [None]
  - DIFFUSE ALVEOLAR DAMAGE [None]
  - DYSPNOEA [None]
